FAERS Safety Report 6756697-4 (Version None)
Quarter: 2010Q2

REPORT INFORMATION
  Report Type: 
  Country: None (occurrence: None)
  Receive Date: 20100603
  Receipt Date: 20100603
  Transmission Date: 20101027
  Serious: No
  Sender: FDA-Public Use
  Company Number: None

PATIENT
  Sex: Male
  Weight: 49.8957 kg

DRUGS (1)
  1. REMERON [Suspect]
     Indication: SLEEP DISORDER
     Dosage: 30 MG PO QHS
     Route: 048

REACTIONS (4)
  - DRUG EFFECT DECREASED [None]
  - INITIAL INSOMNIA [None]
  - PRODUCT SUBSTITUTION ISSUE [None]
  - SOMNOLENCE [None]
